FAERS Safety Report 25991874 (Version 1)
Quarter: 2025Q4

REPORT INFORMATION
  Report Type: Spontaneous
  Country: US (occurrence: None)
  Receive Date: 20251103
  Receipt Date: 20251103
  Transmission Date: 20260118
  Serious: Yes (Other)
  Sender: FDA-CTU
  Company Number: None

PATIENT
  Age: 78 Year
  Sex: Female
  Weight: 35.55 kg

DRUGS (1)
  1. DALBAVANCIN [Suspect]
     Active Substance: DALBAVANCIN
     Indication: Skin infection
     Dosage: 1500 MG ONCE INTRAVENOUS DRIP
     Route: 041
     Dates: start: 20251022, end: 20251022

REACTIONS (3)
  - Urticaria [None]
  - Pharyngeal swelling [None]
  - Infusion related reaction [None]

NARRATIVE: CASE EVENT DATE: 20251022
